FAERS Safety Report 17859865 (Version 1)
Quarter: 2020Q2

REPORT INFORMATION
  Report Type: Spontaneous
  Country: US (occurrence: US)
  Receive Date: 20200604
  Receipt Date: 20200604
  Transmission Date: 20200714
  Serious: Yes (Hospitalization)
  Sender: FDA-Public Use
  Company Number: None

PATIENT
  Age: 70 Year
  Sex: Male
  Weight: 63.5 kg

DRUGS (3)
  1. VANCOMYOCIN 25MG CAPSULES [Concomitant]
  2. ACYCLOVIR 800 MG [Concomitant]
  3. BACTRIM [Suspect]
     Active Substance: SULFAMETHOXAZOLE\TRIMETHOPRIM
     Indication: PROPHYLAXIS
     Route: 048
     Dates: start: 20191122, end: 20200107

REACTIONS (6)
  - Stevens-Johnson syndrome [None]
  - Rash erythematous [None]
  - Oral mucosal eruption [None]
  - Visual impairment [None]
  - Adverse drug reaction [None]
  - Skin exfoliation [None]

NARRATIVE: CASE EVENT DATE: 20200108
